FAERS Safety Report 13793523 (Version 1)
Quarter: 2017Q3

REPORT INFORMATION
  Report Type: Spontaneous
  Country: GB (occurrence: GB)
  Receive Date: 20170726
  Receipt Date: 20170726
  Transmission Date: 20171127
  Serious: Yes (Hospitalization)
  Sender: FDA-Public Use
  Company Number: GB-PFIZER INC-1757902

PATIENT
  Age: 2 Year
  Sex: Female

DRUGS (42)
  1. CYCLOPHOSPHAMIDE. [Suspect]
     Active Substance: CYCLOPHOSPHAMIDE
     Indication: RHABDOMYOSARCOMA
     Dosage: 25 MG/M2, FREQ: 1 DAY; INTERVAL: 1
     Route: 048
     Dates: start: 20120301
  2. DOCUSATE SODIUM. [Concomitant]
     Active Substance: DOCUSATE SODIUM
     Dosage: 25 MG, FREQ: 3 DAY; INTERVAL: 1
     Route: 048
     Dates: start: 20111125
  3. DOCUSATE SODIUM. [Concomitant]
     Active Substance: DOCUSATE SODIUM
     Dosage: 12.5 MG, UNK
     Route: 048
     Dates: start: 20111230
  4. LEVOMEPROMAZINE [Concomitant]
     Active Substance: LEVOMEPROMAZINE
     Indication: PRODUCT USED FOR UNKNOWN INDICATION
     Dosage: 2.6 MG, UNK
     Route: 042
     Dates: start: 20110713
  5. ONDANSETRON [Concomitant]
     Active Substance: ONDANSETRON
     Indication: PRODUCT USED FOR UNKNOWN INDICATION
     Dosage: 9 MG, UNK
     Route: 048
     Dates: end: 20110712
  6. ONDANSETRON [Concomitant]
     Active Substance: ONDANSETRON
     Dosage: 5 MG, UNK
     Route: 048
     Dates: start: 20110927
  7. COTRIMOXAZOLE [Concomitant]
     Active Substance: SULFAMETHOXAZOLE\TRIMETHOPRIM
     Indication: PRODUCT USED FOR UNKNOWN INDICATION
     Dosage: 240 MG, UNK
     Route: 048
     Dates: start: 20110716
  8. MOVICOL /08437601/ [Concomitant]
     Dosage: TDD: 1 SACHET
     Dates: start: 20110901, end: 20110907
  9. G-CSF [Concomitant]
     Active Substance: GRANULOCYTE COLONY-STIMULATING FACTOR NOS
     Indication: PRODUCT USED FOR UNKNOWN INDICATION
     Dosage: 60 UMOL, FREQ: 1 DAY; INTERVAL: 1
     Route: 042
     Dates: start: 20110903
  10. IRINOTECAN HYDROCHLORIDE. [Concomitant]
     Active Substance: IRINOTECAN HYDROCHLORIDE
     Indication: PRODUCT USED FOR UNKNOWN INDICATION
     Dosage: 3 MG, UNK
     Dates: start: 20120915
  11. PIPERACILLIN AND TAZOBACTAM [Concomitant]
     Active Substance: PIPERACILLIN SODIUM\TAZOBACTAM SODIUM
     Dosage: 1070 MG, FREQ: 4 DAY; INTERVAL: 1
     Route: 042
     Dates: start: 20110817, end: 20110824
  12. PIPERACILLIN AND TAZOBACTAM [Concomitant]
     Active Substance: PIPERACILLIN SODIUM\TAZOBACTAM SODIUM
     Dosage: 1050 MG, FREQ: 1 DAY; INTERVAL: 1
     Route: 065
     Dates: start: 20110907, end: 20110910
  13. TEMOZOLOMIDE. [Concomitant]
     Active Substance: TEMOZOLOMIDE
     Indication: PRODUCT USED FOR UNKNOWN INDICATION
     Dosage: 93 MG, UNK
     Dates: start: 20120915
  14. VINORELBINE TARTRATE. [Suspect]
     Active Substance: VINORELBINE TARTRATE
     Indication: RHABDOMYOSARCOMA
     Dosage: 11 MG, FREQ: 1 DAY; INTERVAL: 1
     Route: 042
     Dates: start: 20120301
  15. G-CSF [Concomitant]
     Active Substance: GRANULOCYTE COLONY-STIMULATING FACTOR NOS
     Dosage: 60 UMOL, FREQ: 1 DAY; INTERVAL: 1
     Route: 042
     Dates: start: 20110924
  16. LEVOMEPROMAZINE [Concomitant]
     Active Substance: LEVOMEPROMAZINE
     Dosage: 2.4 MG, 3, FREQ: 2 DAY; INTERVAL: 1
     Route: 042
     Dates: start: 20111125, end: 20111127
  17. PIPERACILLIN AND TAZOBACTAM [Concomitant]
     Active Substance: PIPERACILLIN SODIUM\TAZOBACTAM SODIUM
     Dosage: 1110 MG, FREQ: 1 DAY; INTERVAL: 1
     Route: 042
     Dates: start: 20110928
  18. DOXORUBICIN [Suspect]
     Active Substance: DOXORUBICIN
     Indication: SARCOMA METASTATIC
     Dosage: 30 MG/M2, DAYS 1 AND 2
     Route: 042
     Dates: start: 20110712
  19. MOVICOL /08437601/ [Concomitant]
     Indication: PRODUCT USED FOR UNKNOWN INDICATION
     Dosage: TDD: 2 SACHETS
     Dates: start: 20110820
  20. MOVICOL /08437601/ [Concomitant]
     Dosage: TDD: 2 SACHETS
     Dates: start: 20120326
  21. CEFIXIME. [Concomitant]
     Active Substance: CEFIXIME
     Indication: PRODUCT USED FOR UNKNOWN INDICATION
     Dosage: 100 MG, UNK
     Dates: start: 20120417
  22. PIPERACILLIN AND TAZOBACTAM [Concomitant]
     Active Substance: PIPERACILLIN SODIUM\TAZOBACTAM SODIUM
     Indication: PRODUCT USED FOR UNKNOWN INDICATION
     Dosage: 1150 MG, FREQ: 4 DAY; INTERVAL: 1
     Route: 042
  23. GENTAMICIN SULFATE. [Concomitant]
     Active Substance: GENTAMICIN SULFATE
     Dosage: 90 MG, FREQ: 1 DAY; INTERVAL: 1
     Route: 065
     Dates: start: 20110928
  24. DIHYDROCODEINE [Concomitant]
     Active Substance: DIHYDROCODEINE
     Indication: PRODUCT USED FOR UNKNOWN INDICATION
     Dosage: 5 MG, UNK
     Route: 048
     Dates: start: 20110928
  25. MORPHINE SULFATE. [Concomitant]
     Active Substance: MORPHINE SULFATE
     Indication: STOMATITIS
     Dosage: 1.3 MG, UNK
     Route: 042
  26. MORPHINE SULFATE. [Concomitant]
     Active Substance: MORPHINE SULFATE
     Dosage: UNK
     Route: 048
     Dates: start: 20110817
  27. PARACETAMOL [Concomitant]
     Active Substance: ACETAMINOPHEN
     Indication: STOMATITIS
     Dosage: 220 MG, AS REQUIRED, FREQ: 1 DAY; INTERVAL: 1
     Route: 048
     Dates: start: 20110817
  28. VINCRISTINE SULFATE. [Suspect]
     Active Substance: VINCRISTINE SULFATE
     Indication: SARCOMA METASTATIC
     Dosage: 1.5 MG/M2, DAYS 1,8 AND 15
     Route: 042
     Dates: start: 20110712
  29. LYOVAC COSMEGEN [Suspect]
     Active Substance: DACTINOMYCIN
     Indication: SARCOMA METASTATIC
     Dosage: 0.8 MG, DAY 1, FREQ: 1 DAY; INTERVAL: 1
     Route: 042
     Dates: start: 20110712
  30. BEVACIZUMAB. [Suspect]
     Active Substance: BEVACIZUMAB
     Indication: SARCOMA METASTATIC
     Dosage: 65 MG, DAY 1, FREQ: 1 DAY; INTERVAL: 1
     Route: 042
     Dates: start: 20110712
  31. GENTAMICIN SULFATE. [Concomitant]
     Active Substance: GENTAMICIN SULFATE
     Dosage: 83 MG, FREQ: 1 DAY; INTERVAL: 1
     Route: 042
     Dates: start: 20110817, end: 20110824
  32. FILGRASTIM [Concomitant]
     Active Substance: FILGRASTIM
     Indication: PRODUCT USED FOR UNKNOWN INDICATION
     Dosage: 60 UMOL, FREQ: 1 DAY; INTERVAL: 1
     Route: 042
     Dates: start: 20110903
  33. ONDANSETRON [Concomitant]
     Active Substance: ONDANSETRON
     Dosage: 2.8 MG, UNK
     Route: 048
     Dates: start: 20110901, end: 20110907
  34. IFOSFAMIDE. [Suspect]
     Active Substance: IFOSFAMIDE
     Indication: SARCOMA METASTATIC
     Dosage: 3 MG/M2, DAYS 1 AND 2, FREQ: 1 DAY; INTERVAL: 1
     Route: 042
     Dates: start: 20110712
  35. GENTAMICIN SULFATE. [Concomitant]
     Active Substance: GENTAMICIN SULFATE
     Indication: PRODUCT USED FOR UNKNOWN INDICATION
     Dosage: 90 MG, FREQ: 1 DAY; INTERVAL: 1
     Route: 042
  36. GENTAMICIN SULFATE. [Concomitant]
     Active Substance: GENTAMICIN SULFATE
     Dosage: 82 MG, FREQ: 1 DAY; INTERVAL: 1
     Route: 065
     Dates: start: 20110907, end: 20110910
  37. DOCUSATE SODIUM. [Concomitant]
     Active Substance: DOCUSATE SODIUM
     Indication: PRODUCT USED FOR UNKNOWN INDICATION
     Dosage: 37.5 MG, FREQ: 3 DAY; INTERVAL: 1
     Route: 048
     Dates: start: 20110714
  38. ONDANSETRON [Concomitant]
     Active Substance: ONDANSETRON
     Dosage: 3 MG, FREQ: 3 DAY; INTERVAL: 1
     Route: 048
     Dates: start: 20111125, end: 20111129
  39. ONDANSETRON [Concomitant]
     Active Substance: ONDANSETRON
     Dosage: 6 MG, UNK
     Route: 048
     Dates: start: 20120915
  40. MESNA. [Suspect]
     Active Substance: MESNA
     Indication: SARCOMA METASTATIC
     Dosage: 4.41 G, FREQ: 1 DAY; INTERVAL: 1
     Route: 042
     Dates: start: 20110712
  41. FLUCONAZOLE. [Concomitant]
     Active Substance: FLUCONAZOLE
     Indication: PRODUCT USED FOR UNKNOWN INDICATION
     Route: 042
  42. PARACETAMOL [Concomitant]
     Active Substance: ACETAMINOPHEN
     Indication: PRODUCT USED FOR UNKNOWN INDICATION
     Dosage: 180 MG, UNK
     Route: 042
     Dates: start: 20110715

REACTIONS (9)
  - Epistaxis [Recovered/Resolved]
  - Candida test positive [Recovered/Resolved]
  - Epistaxis [Recovered/Resolved]
  - Febrile neutropenia [Recovered/Resolved]
  - Mucosal inflammation [Recovered/Resolved]
  - Febrile neutropenia [Recovered/Resolved]
  - Epistaxis [Recovered/Resolved]
  - Epistaxis [Recovered/Resolved]
  - Epistaxis [Recovered/Resolved]

NARRATIVE: CASE EVENT DATE: 20110714
